FAERS Safety Report 21983936 (Version 1)
Quarter: 2023Q1

REPORT INFORMATION
  Report Type: Spontaneous
  Country: US (occurrence: US)
  Receive Date: 20230213
  Receipt Date: 20230213
  Transmission Date: 20230418
  Serious: Yes (Other)
  Sender: FDA-Public Use
  Company Number: US-AUROBINDO-AUR-APL-2023-006265

PATIENT
  Age: 3 Year
  Sex: Female
  Weight: 14.9 kg

DRUGS (1)
  1. AMOXICILLIN [Suspect]
     Active Substance: AMOXICILLIN
     Indication: Ear infection
     Dosage: 8.5 MILLILITER, TWO TIMES A DAY (100 ML IN 1 BOTTLE)(04 DOSES)
     Route: 065
     Dates: start: 20230201

REACTIONS (1)
  - Abdominal discomfort [Unknown]

NARRATIVE: CASE EVENT DATE: 20230202
